FAERS Safety Report 8471777-3 (Version None)
Quarter: 2012Q2

REPORT INFORMATION
  Report Type: 
  Country: None (occurrence: None)
  Receive Date: 20120627
  Receipt Date: 20110211
  Transmission Date: 20120825
  Serious: Yes (Other)
  Sender: FDA-Public Use
  Company Number: BR-ROCHE-399838

PATIENT
  Sex: Female
  Weight: 57 kg

DRUGS (6)
  1. CLONAZEPAM [Suspect]
     Route: 048
  2. CLONAZEPAM [Suspect]
     Dosage: AT NIGHT
     Route: 048
  3. CLONAZEPAM [Suspect]
     Dosage: ONE 0.5 MG TABLET AND ONE 2 MG TABLET
     Route: 048
  4. CLONAZEPAM [Suspect]
     Dosage: STRENGTH: 2.5MG/ML
     Route: 048
  5. AMITRIPTYLINE HCL [Concomitant]
     Indication: HEADACHE
     Dosage: DOSE REPORTED AS 25 MG, AT NIGHT. OTHER INDICATION: NAPE PAIN AND DEPRESSION
     Route: 048
  6. CLONAZEPAM [Suspect]
     Indication: HAEMORRHAGIC STROKE
     Dosage: OTHER INDICATION: EPILEPSY
     Route: 048

REACTIONS (15)
  - ASTHENIA [None]
  - CHEST PAIN [None]
  - POLLAKIURIA [None]
  - BLOOD POTASSIUM DECREASED [None]
  - IRRITABILITY [None]
  - HYPERTENSIVE CRISIS [None]
  - DYSPNOEA [None]
  - ALOPECIA [None]
  - BALANCE DISORDER [None]
  - DEPRESSION [None]
  - DIZZINESS [None]
  - SOMNOLENCE [None]
  - MIGRAINE [None]
  - PAIN [None]
  - POOR QUALITY SLEEP [None]
